FAERS Safety Report 15052781 (Version 1)
Quarter: 2018Q2

REPORT INFORMATION
  Report Type: Spontaneous
  Country: PT (occurrence: PT)
  Receive Date: 20180622
  Receipt Date: 20180622
  Transmission Date: 20180711
  Serious: Yes (Hospitalization)
  Sender: FDA-Public Use
  Company Number: PT-PFIZER INC-2018248249

PATIENT
  Age: 63 Year
  Sex: Female
  Weight: 70 kg

DRUGS (2)
  1. PREGABALIN. [Suspect]
     Active Substance: PREGABALIN
     Dosage: 1 DF, 1X/DAY
     Dates: start: 20180319, end: 20180412
  2. VANCOMYCIN HCL [Interacting]
     Active Substance: VANCOMYCIN HYDROCHLORIDE
     Dosage: 1 DF, 1X/DAY
     Dates: start: 20180315, end: 20180404

REACTIONS (3)
  - Drug interaction [Unknown]
  - Erythema multiforme [Unknown]
  - Eosinophilia [Unknown]

NARRATIVE: CASE EVENT DATE: 20180407
